FAERS Safety Report 7230225-1 (Version None)
Quarter: 2011Q1

REPORT INFORMATION
  Report Type: 
  Country: None (occurrence: None)
  Receive Date: 20110118
  Receipt Date: 20110114
  Transmission Date: 20110831
  Serious: Yes (Hospitalization, Other)
  Sender: FDA-Public Use
  Company Number: US-AMGEN-USACT2010008087

PATIENT

DRUGS (12)
  1. GEMZAR [Concomitant]
     Dosage: 2640 MG, Q2WK
     Route: 042
     Dates: start: 20101118
  2. DEXAMETHASONE [Concomitant]
     Dosage: 4 MG, Q2WK
     Route: 042
     Dates: start: 20101118
  3. ZOMETA [Concomitant]
  4. MEGACE [Concomitant]
     Dosage: UNK
     Route: 048
  5. ANZEMET [Concomitant]
     Dosage: 100 MG, Q2WK
     Route: 042
     Dates: start: 20101118
  6. ATIVAN [Concomitant]
  7. ZOCOR [Concomitant]
  8. ATENOLOL [Concomitant]
  9. LASIX [Concomitant]
  10. PANITUMUMAB [Suspect]
     Indication: BREAST CANCER
     Dosage: 426 MG, Q2WK
     Route: 042
     Dates: start: 20101118
  11. CARBOPLATIN [Concomitant]
     Dosage: 166 MG, Q2WK
     Route: 042
     Dates: start: 20101118
  12. DILAUDID [Concomitant]
     Dosage: UNK UNK, PRN

REACTIONS (6)
  - LYMPHOCYTE PERCENTAGE DECREASED [None]
  - DEEP VEIN THROMBOSIS [None]
  - RED BLOOD CELL MACROCYTES PRESENT [None]
  - NEUTROPENIA [None]
  - WHITE BLOOD CELL COUNT DECREASED [None]
  - ANISOCYTOSIS [None]
